FAERS Safety Report 5329806-1 (Version None)
Quarter: 2007Q2

REPORT INFORMATION
  Report Type: 
  Country: None (occurrence: None)
  Receive Date: 20070517
  Receipt Date: 20070517
  Transmission Date: 20071010
  Serious: Yes (Other)
  Sender: FDA-Public Use
  Company Number: None

PATIENT
  Age: 52 Year
  Sex: Female
  Weight: 150 kg

DRUGS (4)
  1. RAPTIVA [Suspect]
     Indication: PSORIASIS
     Dosage: 1 MG/KG QWK SQ
     Route: 058
     Dates: start: 20060102, end: 20070423
  2. SINEQUAN [Concomitant]
  3. SYNTHROID [Concomitant]
  4. DOVONEX [Concomitant]

REACTIONS (1)
  - LYMPHOMA [None]
